FAERS Safety Report 16139363 (Version 1)
Quarter: 2019Q2

REPORT INFORMATION
  Report Type: Report from Study
  Country: US (occurrence: US)
  Receive Date: 20190401
  Receipt Date: 20190401
  Transmission Date: 20190711
  Serious: Yes (Hospitalization, Other)
  Sender: FDA-Public Use
  Company Number: US-ROCHE-2288149

PATIENT
  Age: 66 Year
  Sex: Male
  Weight: 64.47 kg

DRUGS (2)
  1. OCREVUS [Suspect]
     Active Substance: OCRELIZUMAB
     Dosage: FULL DOSE ;ONGOING: UNKNOWN
     Route: 042
     Dates: start: 201804
  2. OCREVUS [Suspect]
     Active Substance: OCRELIZUMAB
     Indication: RELAPSING-REMITTING MULTIPLE SCLEROSIS
     Dosage: HALF DOSES ;ONGOING: NO
     Route: 042
     Dates: start: 201711

REACTIONS (7)
  - Uhthoff^s phenomenon [Recovered/Resolved]
  - Asthenia [Recovered/Resolved]
  - Renal function test abnormal [Recovered/Resolved]
  - Pyelonephritis [Recovered/Resolved]
  - Urinary retention [Recovered/Resolved]
  - Fall [Unknown]
  - Fatigue [Recovered/Resolved]

NARRATIVE: CASE EVENT DATE: 201806
